FAERS Safety Report 5880303-4 (Version None)
Quarter: 2008Q3

REPORT INFORMATION
  Report Type: 
  Country: None (occurrence: None)
  Receive Date: 20080912
  Receipt Date: 20080904
  Transmission Date: 20090109
  Serious: Yes (Hospitalization)
  Sender: FDA-Public Use
  Company Number: JP-PFIZER INC-2008074942

PATIENT
  Sex: Female

DRUGS (5)
  1. SU-011,248 [Suspect]
     Indication: COLORECTAL CANCER
     Route: 048
  2. IRINOTECAN HCL [Suspect]
     Indication: COLORECTAL CANCER
     Route: 042
  3. CALCIUM FOLINATE [Suspect]
     Indication: COLORECTAL CANCER
     Route: 042
  4. FLUOROURACIL [Suspect]
     Indication: COLORECTAL CANCER
     Route: 042
  5. FLUOROURACIL [Suspect]
     Route: 042

REACTIONS (1)
  - INTESTINAL OBSTRUCTION [None]
